FAERS Safety Report 4724608-9 (Version None)
Quarter: 2005Q3

REPORT INFORMATION
  Report Type: 
  Country: None (occurrence: None)
  Receive Date: 20050719
  Receipt Date: 20050719
  Transmission Date: 20060218
  Serious: No
  Sender: FDA-Public Use
  Company Number: None

PATIENT
  Sex: Female
  Weight: 68.0396 kg

DRUGS (2)
  1. PAXIL [Suspect]
     Indication: ANXIETY
     Dosage: 20MG   DAY  ORAL
     Route: 048
     Dates: start: 19970314, end: 20050716
  2. PAXIL [Suspect]
     Indication: PANIC ATTACK
     Dosage: 20MG   DAY  ORAL
     Route: 048
     Dates: start: 19970314, end: 20050716

REACTIONS (6)
  - ANXIETY [None]
  - BLOOD PRESSURE INCREASED [None]
  - FATIGUE [None]
  - INSOMNIA [None]
  - PALPITATIONS [None]
  - WEIGHT INCREASED [None]
